FAERS Safety Report 7913534-X (Version None)
Quarter: 2011Q4

REPORT INFORMATION
  Report Type: 
  Country: None (occurrence: None)
  Receive Date: 20111115
  Receipt Date: 20111103
  Transmission Date: 20120403
  Serious: No
  Sender: FDA-Public Use
  Company Number: US-BAYER-2011-103564

PATIENT
  Age: 66 Year
  Sex: Female

DRUGS (8)
  1. VITAMIN B COMPLEX CAP [Concomitant]
  2. VITAMIN D [Concomitant]
  3. MULTI-VITAMIN [Concomitant]
  4. NADOLOL [Concomitant]
  5. PRILOSEC [Concomitant]
  6. NEXAVAR [Suspect]
     Indication: HEPATIC NEOPLASM MALIGNANT
     Dosage: 400 MG, QD
     Route: 048
     Dates: start: 20110930
  7. SPIRONOLACTONE [Concomitant]
  8. FUROSEMIDE [Concomitant]

REACTIONS (3)
  - FATIGUE [None]
  - VOMITING [None]
  - DIARRHOEA [None]
